FAERS Safety Report 10267850 (Version 1)
Quarter: 2014Q2

REPORT INFORMATION
  Report Type: Spontaneous
  Country: US (occurrence: None)
  Receive Date: 20140626
  Receipt Date: 20140626
  Transmission Date: 20141212
  Serious: Yes (Other)
  Sender: FDA-Public Use
  Company Number: None

PATIENT
  Age: 40 Year
  Sex: Male
  Weight: 70.31 kg

DRUGS (1)
  1. ZITHROMAX [Suspect]
     Indication: LUNG INFECTION
     Dosage: 2, THEN 1 ONCE DAILY TAKEN BY MOUTH
     Route: 048
     Dates: start: 20140618, end: 20140621

REACTIONS (10)
  - Night sweats [None]
  - Dizziness [None]
  - Dyspnoea [None]
  - Hallucination [None]
  - Anxiety [None]
  - Chest pain [None]
  - Feeling jittery [None]
  - Insomnia [None]
  - Depression [None]
  - Panic attack [None]
